FAERS Safety Report 7882180-9 (Version None)
Quarter: 2011Q4

REPORT INFORMATION
  Report Type: 
  Country: None (occurrence: None)
  Receive Date: 20111101
  Receipt Date: 20110610
  Transmission Date: 20120403
  Serious: No
  Sender: FDA-Public Use
  Company Number: US-AMGEN-USASP2011020998

PATIENT
  Age: 59 Year
  Sex: Male

DRUGS (4)
  1. METHOTREXATE [Concomitant]
     Dosage: 1 MG, QWK
     Dates: start: 20100101
  2. ENBREL [Suspect]
     Indication: PSORIATIC ARTHROPATHY
     Dosage: UNK
     Dates: start: 19980101, end: 19980101
  3. ENBREL [Suspect]
     Indication: PROSTATIC SPECIFIC ANTIGEN
     Dosage: 50 MG, QWK
     Route: 058
     Dates: start: 20110508
  4. SULFASALAZINE [Concomitant]
     Dosage: 1 MG, QD

REACTIONS (7)
  - PAIN IN EXTREMITY [None]
  - FOOT DEFORMITY [None]
  - MUSCULOSKELETAL DISORDER [None]
  - DEFORMITY [None]
  - THERAPEUTIC RESPONSE DECREASED [None]
  - C-REACTIVE PROTEIN INCREASED [None]
  - ARTHRALGIA [None]
